FAERS Safety Report 6369419-6 (Version None)
Quarter: 2009Q3

REPORT INFORMATION
  Report Type: 
  Country: None (occurrence: None)
  Receive Date: 20090917
  Receipt Date: 20090910
  Transmission Date: 20100115
  Serious: Yes (Death, Hospitalization)
  Sender: FDA-Public Use
  Company Number: 2009AL004208

PATIENT
  Age: 76 Year
  Sex: Male

DRUGS (17)
  1. DIGOXIN [Suspect]
     Dosage: 0.125MG, DAILY, PO
     Route: 048
     Dates: start: 20051218
  2. DIGOXIN [Suspect]
     Dosage: 0.25MG, DAILY, IV
     Route: 042
     Dates: start: 20080403
  3. METOPROLOL SUCCINATE [Concomitant]
  4. LEXAPRO [Concomitant]
  5. GENTAMICIN [Concomitant]
  6. WARFARIN [Concomitant]
  7. HYDROCODONE [Concomitant]
  8. COMBIVENT [Concomitant]
  9. LEVAQUIN [Concomitant]
  10. TRIAMCINOLONE [Concomitant]
  11. LASIX [Concomitant]
  12. KLOR-CON [Concomitant]
  13. INSULIN [Concomitant]
  14. MORPHINE [Concomitant]
  15. PROTONIX [Concomitant]
  16. DILTIAZEM [Concomitant]
  17. ACETAMINOPHEN [Concomitant]

REACTIONS (23)
  - CHEST PAIN [None]
  - COMMUNICATION DISORDER [None]
  - COUGH [None]
  - DYSPHAGIA [None]
  - DYSPNOEA [None]
  - ECONOMIC PROBLEM [None]
  - EMPHYSEMA [None]
  - GALLBLADDER ENLARGEMENT [None]
  - HAEMOPTYSIS [None]
  - HAEMOTHORAX [None]
  - HEMIPARESIS [None]
  - HYPERHIDROSIS [None]
  - HYPOTENSION [None]
  - JUGULAR VEIN DISTENSION [None]
  - MULTIPLE INJURIES [None]
  - MUSCLE CONTRACTURE [None]
  - MUSCULOSKELETAL DISCOMFORT [None]
  - NAUSEA [None]
  - PLEURAL EFFUSION [None]
  - PULMONARY MASS [None]
  - SEPSIS [None]
  - SINUS TACHYCARDIA [None]
  - SYSTEMIC INFLAMMATORY RESPONSE SYNDROME [None]
